FAERS Safety Report 4316979-2 (Version None)
Quarter: 2004Q1

REPORT INFORMATION
  Report Type: 
  Country: None (occurrence: None)
  Receive Date: 20040312
  Receipt Date: 20040224
  Transmission Date: 20041129
  Serious: Yes (Hospitalization)
  Sender: FDA-Public Use
  Company Number: 2003IM001295

PATIENT
  Age: 68 Year
  Sex: Male
  Weight: 98.4306 kg

DRUGS (9)
  1. ACTIMMUNE [Suspect]
     Indication: INTERSTITIAL LUNG DISEASE
     Dosage: 20 UG; TIW; SUBCUTANEOUS
     Route: 058
     Dates: start: 20031110, end: 20031229
  2. ASPIRIN [Suspect]
     Dosage: 81 MG; QD; ORAL
     Route: 048
     Dates: start: 20030924, end: 20031229
  3. PLAVIX [Suspect]
     Dosage: 75 MG; QD; ORAL
     Route: 048
     Dates: start: 20030901, end: 20031229
  4. CELEBREX [Suspect]
     Dosage: 200 MG; QD; ORAL
     Route: 048
     Dates: start: 20020502, end: 20031229
  5. PREDNISONE [Suspect]
     Dosage: 10 MG; QD; ORAL
     Route: 048
     Dates: start: 20010329
  6. TESSALON [Concomitant]
  7. TYLENOL (CAPLET) [Concomitant]
  8. FLONASE [Concomitant]
  9. ZYRTEC [Concomitant]

REACTIONS (3)
  - ANAEMIA [None]
  - GASTRIC ULCER HAEMORRHAGE [None]
  - HYPOVOLAEMIA [None]
